FAERS Safety Report 8482568-1 (Version None)
Quarter: 2012Q3

REPORT INFORMATION
  Report Type: 
  Country: None (occurrence: None)
  Receive Date: 20120702
  Receipt Date: 20120622
  Transmission Date: 20120928
  Serious: Yes (Disabling, Other)
  Sender: FDA-Public Use
  Company Number: US-BAYER-2012-045111

PATIENT
  Age: 54 Year
  Sex: Male

DRUGS (20)
  1. GADOLINIUM IN UNSPECIFIED DRUG [Suspect]
     Indication: NUCLEAR MAGNETIC RESONANCE IMAGING ABDOMINAL
     Dosage: UNK
     Dates: start: 20001129
  2. EPOETIN ALFA [Concomitant]
     Dosage: 3000 IU, TIW
     Route: 058
  3. PHOSLO [Concomitant]
     Dosage: 667 MG, WITH MEALS
     Route: 048
  4. LORAZEPAM [Concomitant]
     Dosage: 1 MG, PRN
     Route: 048
  5. GADOLINIUM IN UNSPECIFIED DRUG [Suspect]
     Indication: NUCLEAR MAGNETIC RESONANCE IMAGING
     Dosage: UNK
     Route: 042
     Dates: start: 20001212, end: 20001212
  6. MISOPROSTOL [Concomitant]
     Dosage: 200 ?G, TID
     Route: 048
  7. CEFAZOLIN SODIUM [Concomitant]
     Dosage: 1GM IN 50ML
     Route: 042
  8. VITAMIN E [Concomitant]
     Dosage: 1000 MG, AT NIGHT
     Route: 048
  9. OPTIMARK [Suspect]
  10. VITAMIN D [Concomitant]
     Dosage: 1000 IU, HS
     Route: 048
  11. AMIODARONE HYDROCHLORIDE [Concomitant]
  12. LANSOPRAZOLE [Concomitant]
     Dosage: 30 MG,BEFORE BREAKFAST
  13. HUMULIN R [Concomitant]
     Dosage: 28 IU, HS
     Route: 058
  14. CALCIUM ACETATE [Concomitant]
     Dosage: 2-3 TABS 3X/DAY
     Route: 048
  15. VERAPAMIL HCL [Concomitant]
     Dosage: 240 MG, QD
     Route: 048
  16. ATACAND HCT [Concomitant]
     Dosage: 32 MG, HS
     Route: 048
  17. MAGNEVIST [Suspect]
  18. OMNISCAN [Suspect]
  19. MINOXIDIL [Concomitant]
     Dosage: 5 MG, BID
     Route: 048
  20. CYTOTEC [Concomitant]
     Dosage: 200 MG, TID
     Route: 048

REACTIONS (19)
  - INJURY [None]
  - MOBILITY DECREASED [None]
  - SKIN HYPERTROPHY [None]
  - ARTHRALGIA [None]
  - PRURITUS [None]
  - MUSCLE CONTRACTIONS INVOLUNTARY [None]
  - NEPHROGENIC SYSTEMIC FIBROSIS [None]
  - EMOTIONAL DISTRESS [None]
  - MUSCULOSKELETAL STIFFNESS [None]
  - NEUROPATHIC ULCER [None]
  - FIBROSIS [None]
  - ERYTHEMA [None]
  - NEUROPATHY PERIPHERAL [None]
  - MUSCLE SPASMS [None]
  - ABASIA [None]
  - OEDEMA PERIPHERAL [None]
  - EXCORIATION [None]
  - MUSCLE RIGIDITY [None]
  - PAIN [None]
